FAERS Safety Report 22315263 (Version 1)
Quarter: 2023Q2

REPORT INFORMATION
  Report Type: Spontaneous
  Country: IT (occurrence: IT)
  Receive Date: 20230512
  Receipt Date: 20230512
  Transmission Date: 20230722
  Serious: Yes (Life-Threatening, Hospitalization)
  Sender: FDA-Public Use
  Company Number: IT-MYLANLABS-2023M1049752

PATIENT
  Age: 74 Year
  Sex: Female

DRUGS (2)
  1. PREDNISONE [Suspect]
     Active Substance: PREDNISONE
     Indication: Product used for unknown indication
     Dosage: 7.5 MILLIGRAM, QD; THERAPY WAS DISCONTINUED PRIOR TO ADR ONSET, LATER RESTARTED UPON DISCHARGE
     Route: 065
  2. PREDNISONE [Suspect]
     Active Substance: PREDNISONE
     Dosage: UNK, LATER RESTARTED UPON DISCHARGE
     Route: 065

REACTIONS (3)
  - Adrenocortical insufficiency acute [Unknown]
  - Shock [Recovered/Resolved]
  - Stress cardiomyopathy [Recovered/Resolved]
